FAERS Safety Report 15212951 (Version 1)
Quarter: 2018Q3

REPORT INFORMATION
  Report Type: Report from Study
  Country: FR (occurrence: FR)
  Receive Date: 20180730
  Receipt Date: 20180730
  Transmission Date: 20181010
  Serious: Yes (Death, Other)
  Sender: FDA-Public Use
  Company Number: FR-TEVA-2018-FR-931732

PATIENT
  Age: 69 Year
  Sex: Female
  Weight: 77 kg

DRUGS (9)
  1. ELVORINE [Suspect]
     Active Substance: LEUCOVORIN CALCIUM
     Route: 065
     Dates: start: 20161108
  2. IRINOTECAN [Concomitant]
     Active Substance: IRINOTECAN
     Dosage: CYCLE 3
     Route: 065
     Dates: start: 20161108
  3. FU [Suspect]
     Active Substance: FLUOROURACIL
     Indication: COLORECTAL CANCER METASTATIC
     Route: 040
     Dates: start: 20161011
  4. AVASTIN [Suspect]
     Active Substance: BEVACIZUMAB
     Indication: COLORECTAL CANCER METASTATIC
     Dosage: CYCLE 2
     Route: 042
     Dates: start: 20161108
  5. FU [Suspect]
     Active Substance: FLUOROURACIL
     Dates: start: 20161011
  6. AVASTIN [Suspect]
     Active Substance: BEVACIZUMAB
     Route: 042
     Dates: start: 20161025
  7. ELVORINE [Suspect]
     Active Substance: LEUCOVORIN CALCIUM
     Route: 065
     Dates: start: 20161011
  8. FU [Suspect]
     Active Substance: FLUOROURACIL
     Route: 040
  9. FU [Suspect]
     Active Substance: FLUOROURACIL
     Dosage: CYCLE 3
     Dates: start: 20161110

REACTIONS (5)
  - Death [Fatal]
  - Headache [Fatal]
  - Hypertensive crisis [Fatal]
  - Epistaxis [Fatal]
  - Hypertension [Fatal]

NARRATIVE: CASE EVENT DATE: 20161108
